FAERS Safety Report 11048217 (Version 1)
Quarter: 2015Q2

REPORT INFORMATION
  Report Type: Spontaneous
  Country: US (occurrence: None)
  Receive Date: 20150417
  Receipt Date: 20150417
  Transmission Date: 20150821
  Serious: No
  Sender: FDA-Public Use
  Company Number: None

PATIENT
  Age: 76 Year
  Sex: Male

DRUGS (1)
  1. EXJADE [Suspect]
     Active Substance: DEFERASIROX
     Indication: IRON OVERLOAD
     Dosage: 2 MONTHS, 2000MG, QD, PO
     Route: 048

REACTIONS (3)
  - Eye swelling [None]
  - Unevaluable event [None]
  - Neck pain [None]

NARRATIVE: CASE EVENT DATE: 201504
